FAERS Safety Report 9454613 (Version 3)
Quarter: 2014Q1

REPORT INFORMATION
  Report Type: Not Available
  Country: FR (occurrence: FR)
  Receive Date: 20130812
  Receipt Date: 20140115
  Transmission Date: 20141002
  Serious: Yes (Death, Hospitalization)
  Sender: FDA-Public Use
  Company Number: FR-NAPPMUNDI-GBR-2013-0015225

PATIENT
  Age: 58 Year
  Sex: Female

DRUGS (6)
  1. OXYCODONE HCL PR TABLET 10 MG [Suspect]
     Indication: PAIN
     Dosage: 10 MG, 1 TO 2 PER DAY
     Route: 048
     Dates: end: 20130717
  2. OXYNORM 5 MG, GELULE [Suspect]
     Indication: PAIN
     Dosage: 5 MG, 1 TO 2 PER DAY
     Route: 048
     Dates: end: 20130717
  3. PRAZEPAM [Concomitant]
     Dosage: 20 MG, DAILY
     Route: 048
  4. ZOLPIDEM [Concomitant]
     Dosage: 10 MG, DAILY
     Route: 048
  5. PARACETAMOL [Concomitant]
     Dosage: 1 TO 2 GRAM DAILY
     Route: 048
  6. GEMCITABINE [Concomitant]
     Dosage: UNK

REACTIONS (2)
  - Intestinal perforation [Fatal]
  - Subileus [Not Recovered/Not Resolved]
